FAERS Safety Report 18806873 (Version 2)
Quarter: 2021Q1

REPORT INFORMATION
  Report Type: Report from Study
  Country: BR (occurrence: BR)
  Receive Date: 20210128
  Receipt Date: 20210325
  Transmission Date: 20210419
  Serious: Yes (Other)
  Sender: FDA-Public Use
  Company Number: BR-AMGEN-BRASL2021010441

PATIENT
  Age: 62 Year
  Sex: Female

DRUGS (1)
  1. VECTIBIX [Suspect]
     Active Substance: PANITUMUMAB
     Indication: GASTROINTESTINAL CARCINOMA
     Dosage: UNK, EVERY 15 DAYS
     Route: 065
     Dates: start: 2020

REACTIONS (1)
  - Anaemia [Recovering/Resolving]
